FAERS Safety Report 8793964 (Version 2)
Quarter: 2012Q4

REPORT INFORMATION
  Report Type: 
  Country: US (occurrence: US)
  Receive Date: 20120917
  Receipt Date: 20121018
  Transmission Date: 20130627
  Serious: Yes (Life-Threatening, Hospitalization, Other)
  Sender: FDA-Public Use
  Company Number: PHEH2012US017857

PATIENT
  Age: 75 Year
  Sex: Female
  Weight: 184 kg

DRUGS (7)
  1. TEKTURNA [Suspect]
     Indication: HYPERTENSION
     Dosage: 150 mg, QD
     Route: 048
  2. LOSARTAN [Concomitant]
     Indication: HYPERTENSION
     Dosage: 100 mg, QD
     Route: 048
  3. DILTIAZEM [Concomitant]
     Dosage: 150 mg, QD
     Route: 048
  4. ZOCOR [Concomitant]
     Indication: LIPIDS
     Dosage: 20 mg, QD
     Route: 048
     Dates: start: 20110610, end: 201112
  5. NITROFURANTOIN [Concomitant]
     Indication: URINARY TRACT INFECTION
     Dosage: 50 mg, QD
  6. ZOLPIDEM [Concomitant]
     Indication: INSOMNIA
     Dosage: 5 mg, PRN
     Route: 048
  7. ALLEGRA [Concomitant]
     Indication: HYPERSENSITIVITY
     Dosage: 180 mg, PRN
     Route: 048

REACTIONS (3)
  - Cerebrovascular accident [Recovered/Resolved with Sequelae]
  - Brain injury [Recovered/Resolved with Sequelae]
  - Thrombosis [Recovered/Resolved with Sequelae]
